FAERS Safety Report 12289705 (Version 1)
Quarter: 2016Q2

REPORT INFORMATION
  Report Type: Spontaneous
  Country: CN (occurrence: CN)
  Receive Date: 20160421
  Receipt Date: 20160421
  Transmission Date: 20160815
  Serious: Yes (Other)
  Sender: FDA-Public Use
  Company Number: CN-SUN PHARMACEUTICAL INDUSTRIES LTD-2016R1-114891

PATIENT
  Age: 81 Year
  Sex: Female

DRUGS (1)
  1. BACLOFEN. [Suspect]
     Active Substance: BACLOFEN
     Indication: MUSCLE SPASMS
     Dosage: 10 MG, DAILY
     Route: 048

REACTIONS (5)
  - Head injury [Unknown]
  - Fall [Unknown]
  - Altered state of consciousness [Recovered/Resolved]
  - Hypotonia [Unknown]
  - Mental status changes [Recovered/Resolved]
